FAERS Safety Report 18386427 (Version 4)
Quarter: 2021Q2

REPORT INFORMATION
  Report Type: Spontaneous
  Country: US (occurrence: US)
  Receive Date: 20201015
  Receipt Date: 20210527
  Transmission Date: 20210717
  Serious: Yes (Hospitalization, Other)
  Sender: FDA-Public Use
  Company Number: US-BAYER-2020-217535

PATIENT
  Age: 29 Year
  Sex: Female

DRUGS (4)
  1. VENLAFAXINE [Concomitant]
     Active Substance: VENLAFAXINE HYDROCHLORIDE
  2. BUPROPION. [Concomitant]
     Active Substance: BUPROPION
  3. TNF [Concomitant]
     Active Substance: UNSPECIFIED INGREDIENT
  4. MIRENA [Suspect]
     Active Substance: LEVONORGESTREL
     Indication: HEAVY MENSTRUAL BLEEDING
     Dosage: 20 ?G PER DAY CONTINUOUSLY
     Route: 015
     Dates: end: 20181206

REACTIONS (12)
  - Anxiety [None]
  - Embedded device [Recovered/Resolved]
  - Heavy menstrual bleeding [None]
  - Device breakage [Recovered/Resolved]
  - Pelvic pain [None]
  - Back pain [None]
  - Abdominal pain lower [None]
  - Abnormal uterine bleeding [None]
  - Genital haemorrhage [None]
  - Vaginal haemorrhage [None]
  - Complication of device removal [None]
  - Complication of device removal [Recovered/Resolved]

NARRATIVE: CASE EVENT DATE: 20131107
